FAERS Safety Report 12889498 (Version 1)
Quarter: 2016Q4

REPORT INFORMATION
  Report Type: Spontaneous
  Country: US (occurrence: US)
  Receive Date: 20161027
  Receipt Date: 20161027
  Transmission Date: 20170207
  Serious: Yes (Other)
  Sender: FDA-Public Use
  Company Number: US-PFIZER INC-2016493892

PATIENT
  Age: 4 Decade
  Sex: Female

DRUGS (5)
  1. ETIZOLAM [Suspect]
     Active Substance: ETIZOLAM
     Dosage: UNK
     Route: 048
  2. LEVAMISOLE [Suspect]
     Active Substance: LEVAMISOLE
     Dosage: UNK
  3. COCAINE [Suspect]
     Active Substance: COCAINE
     Dosage: UNK
  4. FENTANYL CITRATE. [Suspect]
     Active Substance: FENTANYL CITRATE
     Dosage: UNK
  5. ALPRAZOLAM. [Suspect]
     Active Substance: ALPRAZOLAM
     Dosage: UNK

REACTIONS (6)
  - Intentional product misuse [Recovered/Resolved]
  - Myocardial ischaemia [Recovered/Resolved]
  - Product counterfeit [Recovered/Resolved]
  - Rhabdomyolysis [Recovered/Resolved]
  - Counterfeit drug administered [Recovered/Resolved]
  - Neuropathy peripheral [Recovered/Resolved]
